FAERS Safety Report 24867726 (Version 1)
Quarter: 2025Q1

REPORT INFORMATION
  Report Type: Report from Study
  Country: CA (occurrence: CA)
  Receive Date: 20250121
  Receipt Date: 20250121
  Transmission Date: 20250408
  Serious: Yes (Other)
  Sender: ABBVIE
  Company Number: CA-ABBVIE-6094239

PATIENT
  Sex: Female

DRUGS (1)
  1. SKYRIZI [Suspect]
     Active Substance: RISANKIZUMAB-RZAA
     Indication: Crohn^s disease
     Route: 058
     Dates: start: 20230720

REACTIONS (5)
  - Intestinal obstruction [Recovered/Resolved]
  - Pain [Unknown]
  - Malaise [Unknown]
  - Pain [Recovering/Resolving]
  - Crohn^s disease [Unknown]
